FAERS Safety Report 19952249 (Version 8)
Quarter: 2022Q2

REPORT INFORMATION
  Report Type: Report from Study
  Country: PL (occurrence: None)
  Receive Date: 20211014
  Receipt Date: 20220625
  Transmission Date: 20220721
  Serious: Yes (Hospitalization)
  Sender: FDA-Public Use
  Company Number: PL-ROCHE-2932727

PATIENT
  Age: 72 Year
  Sex: Female
  Weight: 88 kg

DRUGS (17)
  1. ATEZOLIZUMAB [Suspect]
     Active Substance: ATEZOLIZUMAB
     Indication: Triple negative breast cancer
     Dosage: ON 15/SEP/2021, SHE RECEIVED MOST RECENT DOSE OF ATEZOLIZUMAB (840 MG) PRIOR TO ONSET OF SERIOUS ADV
     Route: 041
     Dates: start: 20201216
  2. PACLITAXEL [Suspect]
     Active Substance: PACLITAXEL
     Indication: Triple negative breast cancer
     Dosage: ON 09/SEP/2021, SHE RECEIVED MOST RECENT DOSE OF ALBUMIN BOUND PACLITAXEL (100 MG/M2) PRIOR TO ONSET
     Route: 042
     Dates: start: 20201216
  3. CANDESARTAN [Concomitant]
     Active Substance: CANDESARTAN
     Dates: start: 2010
  4. HYDROCHLOROTHIAZIDE [Concomitant]
     Active Substance: HYDROCHLOROTHIAZIDE
     Dates: start: 2010
  5. BISOPROLOL [Concomitant]
     Active Substance: BISOPROLOL
     Dates: start: 2010
  6. VINPOCETINE [Concomitant]
     Active Substance: VINPOCETINE
     Dates: start: 2010
  7. BETAHISTINE [Concomitant]
     Active Substance: BETAHISTINE
     Indication: Vertigo
     Dates: start: 2010
  8. ATORVASTATIN [Concomitant]
     Active Substance: ATORVASTATIN
     Indication: Hypercholesterolaemia
     Dates: start: 2010
  9. LACIDIPINE [Concomitant]
     Active Substance: LACIDIPINE
     Dates: start: 2010
  10. DOXAZOSIN [Concomitant]
     Active Substance: DOXAZOSIN MESYLATE
     Dates: start: 2010
  11. LEVOTHYROXINE [Concomitant]
     Active Substance: LEVOTHYROXINE
     Dates: start: 2005
  12. METFORMIN HYDROCHLORIDE [Concomitant]
     Active Substance: METFORMIN HYDROCHLORIDE
     Dates: start: 202009
  13. TORSEMIDE [Concomitant]
     Active Substance: TORSEMIDE
     Dates: start: 2010
  14. TIMONACIC [Concomitant]
     Active Substance: TIMONACIC
     Dates: start: 20210310
  15. CETIRIZINE HYDROCHLORIDE [Concomitant]
     Active Substance: CETIRIZINE HYDROCHLORIDE
     Dates: start: 20210505
  16. COTRIMOXAZOLE [Concomitant]
     Active Substance: SULFAMETHOXAZOLE\TRIMETHOPRIM
     Dates: start: 20211013, end: 20211022
  17. CEFOTAXIME [Concomitant]
     Active Substance: CEFOTAXIME SODIUM
     Dates: start: 20211013, end: 20211022

REACTIONS (2)
  - Hepatic failure [Not Recovered/Not Resolved]
  - Drug-induced liver injury [Not Recovered/Not Resolved]

NARRATIVE: CASE EVENT DATE: 20210928
